FAERS Safety Report 5375278-0 (Version None)
Quarter: 2007Q2

REPORT INFORMATION
  Report Type: 
  Country: None (occurrence: None)
  Receive Date: 20070629
  Receipt Date: 20061003
  Transmission Date: 20071010
  Serious: Yes (Other)
  Sender: FDA-Public Use
  Company Number: US-ASTRAZENECA-2006UW19236

PATIENT
  Age: 40 Year
  Sex: Female
  Weight: 58.1 kg

DRUGS (8)
  1. TAMOXIFEN CITRATE [Suspect]
     Indication: BREAST CANCER
     Route: 048
     Dates: start: 20010101
  2. EFFEXOR XR [Concomitant]
  3. PREVACID [Concomitant]
  4. KEPPRA [Concomitant]
  5. AGGRENOX [Concomitant]
     Dosage: 200 MG/25 MG
  6. POTASSIUM ACETATE [Concomitant]
  7. OXYCONTIN [Concomitant]
  8. PERCOCET [Concomitant]

REACTIONS (1)
  - UTERINE CANCER [None]
